FAERS Safety Report 22599879 (Version 1)
Quarter: 2023Q2

REPORT INFORMATION
  Report Type: Spontaneous
  Country: US (occurrence: US)
  Receive Date: 20230614
  Receipt Date: 20230614
  Transmission Date: 20230721
  Serious: Yes (Hospitalization)
  Sender: FDA-Public Use
  Company Number: US-SA-SAC20230613000135

PATIENT
  Sex: Female

DRUGS (1)
  1. DUPILUMAB [Suspect]
     Active Substance: DUPILUMAB
     Indication: Asthma
     Dosage: UNK
     Route: 058
     Dates: start: 202301

REACTIONS (3)
  - Asthma [Recovering/Resolving]
  - Therapeutic product effect decreased [Recovering/Resolving]
  - Viral test positive [Recovering/Resolving]

NARRATIVE: CASE EVENT DATE: 20230101
